FAERS Safety Report 5457055-5 (Version None)
Quarter: 2007Q3

REPORT INFORMATION
  Report Type: 
  Country: None (occurrence: None)
  Receive Date: 20070918
  Receipt Date: 20070531
  Transmission Date: 20080115
  Serious: Yes (Other)
  Sender: FDA-Public Use
  Company Number: US-ASTRAZENECA-2006UW27933

PATIENT
  Age: 61 Year
  Sex: Male
  Weight: 68.2 kg

DRUGS (6)
  1. SEROQUEL [Suspect]
     Indication: INSOMNIA
     Dosage: 100 TO 200MG
     Route: 048
  2. LITHIUM CARBONATE [Concomitant]
  3. DEPAKOTE [Concomitant]
  4. PAXIL [Concomitant]
  5. PROZAC [Concomitant]
  6. BENZODIAZIPINES [Concomitant]

REACTIONS (1)
  - PANCREATITIS [None]
